FAERS Safety Report 8587850 (Version 3)
Quarter: 2013Q2

REPORT INFORMATION
  Report Type: Spontaneous
  Country: BR (occurrence: BR)
  Receive Date: 20120531
  Receipt Date: 20130412
  Transmission Date: 20140414
  Serious: Yes (Hospitalization)
  Sender: FDA-Public Use
  Company Number: PHHY2012BR044913

PATIENT
  Sex: Female
  Weight: 75 kg

DRUGS (8)
  1. ONBREZ [Suspect]
     Indication: CHRONIC OBSTRUCTIVE PULMONARY DISEASE
     Dosage: 300 UG, BID
  2. FORMOTEROL FUMARATE [Concomitant]
     Indication: ASTHMA
     Dosage: 3 INHALATIONS DAILY, FOR 6 YEARS AGO
  3. JANUMET [Concomitant]
     Indication: DIABETES MELLITUS
     Dosage: 1 DF, BID
  4. FUROSEMIDE [Concomitant]
  5. ROSUVASTATIN [Concomitant]
     Indication: BLOOD TRIGLYCERIDES ABNORMAL
  6. METFORMIN [Concomitant]
     Indication: DIABETES MELLITUS
  7. SPIRONOLACTONE [Concomitant]
  8. GLIMEPIRIDE [Concomitant]
     Indication: ASTHMA

REACTIONS (6)
  - Fluid retention [Recovering/Resolving]
  - Swelling [Recovering/Resolving]
  - Dyspnoea [Recovering/Resolving]
  - Cough [Recovering/Resolving]
  - Inappropriate schedule of drug administration [Unknown]
  - Overdose [Unknown]
